FAERS Safety Report 10872219 (Version 1)
Quarter: 2015Q1

REPORT INFORMATION
  Report Type: Spontaneous
  Country: US (occurrence: None)
  Receive Date: 20150223
  Receipt Date: 20150223
  Transmission Date: 20150721
  Serious: Yes (Disabling)
  Sender: FDA-Public Use
  Company Number: None

PATIENT
  Age: 56 Year
  Sex: Female
  Weight: 68.04 kg

DRUGS (7)
  1. FLONASE [Concomitant]
     Active Substance: FLUTICASONE PROPIONATE
  2. ZYRTEC [Concomitant]
     Active Substance: CETIRIZINE HYDROCHLORIDE
  3. VITAFUSION WOMEN^S COMPLETE MUTIVITAMINS [Concomitant]
  4. SINGULAIR [Concomitant]
     Active Substance: MONTELUKAST SODIUM
  5. AMITRIPTYLINE [Concomitant]
     Active Substance: AMITRIPTYLINE
  6. LEVOFLOXACIN 750 MG ZYDUS [Suspect]
     Active Substance: LEVOFLOXACIN
     Indication: SINUS DISORDER
     Dosage: 1 PILL
     Route: 048
     Dates: start: 20150108, end: 20150122
  7. OMEPRAZOLE. [Concomitant]
     Active Substance: OMEPRAZOLE

REACTIONS (3)
  - Arthralgia [None]
  - Pain [None]
  - Tendonitis [None]

NARRATIVE: CASE EVENT DATE: 20150122
